FAERS Safety Report 19995798 (Version 2)
Quarter: 2023Q2

REPORT INFORMATION
  Report Type: Spontaneous
  Country: GR (occurrence: GR)
  Receive Date: 20211025
  Receipt Date: 20230410
  Transmission Date: 20230721
  Serious: Yes (Other)
  Sender: FDA-Public Use
  Company Number: GR-PFIZER INC-2021798715

PATIENT
  Age: 65 Year
  Sex: Female

DRUGS (8)
  1. METHOTREXATE [Suspect]
     Active Substance: METHOTREXATE
     Indication: Rheumatoid arthritis
     Dosage: UNK
     Route: 065
     Dates: start: 202009
  2. COMIRNATY [Suspect]
     Active Substance: TOZINAMERAN
     Indication: COVID-19 immunisation
     Dosage: UNK, DOSE 1, SINGLE, TOTAL
     Route: 065
     Dates: start: 20210416, end: 20210416
  3. EBASTINE [Suspect]
     Active Substance: EBASTINE
     Indication: Musculoskeletal stiffness
     Dosage: 1 DOSAGE FORM, QD
     Route: 048
  4. EBASTINE [Suspect]
     Active Substance: EBASTINE
     Indication: Rhinitis
  5. COVID-19 VACCINE NOS [Suspect]
     Active Substance: COVID-19 VACCINE NOS
     Indication: COVID-19 immunisation
     Dosage: 1 DOSAGE FORM, QD (DOSE 1, SINGLE1.0DF ONCE)
     Route: 065
     Dates: start: 20210416, end: 20210416
  6. MEDROL [Suspect]
     Active Substance: METHYLPREDNISOLONE
     Indication: Rheumatoid arthritis
     Dosage: UNK UNK, QD
     Route: 065
  7. MEDROL [Suspect]
     Active Substance: METHYLPREDNISOLONE
     Dosage: 8 MILLIGRAM, QD (8 MG, 1X/DAY)
     Route: 065
     Dates: start: 202009
  8. OMEPRAZOLE MAGNESIUM [Suspect]
     Active Substance: OMEPRAZOLE MAGNESIUM
     Indication: Gastrooesophageal reflux disease
     Dosage: UNK
     Route: 065

REACTIONS (8)
  - Mobility decreased [Unknown]
  - Pain [Recovering/Resolving]
  - Toothache [Unknown]
  - Swelling [Unknown]
  - Paralysis [Recovering/Resolving]
  - Arthralgia [Recovered/Resolved]
  - Pyrexia [Unknown]
  - Alopecia [Unknown]

NARRATIVE: CASE EVENT DATE: 20210101
